FAERS Safety Report 4820588-6 (Version None)
Quarter: 2005Q4

REPORT INFORMATION
  Report Type: 
  Country: None (occurrence: None)
  Receive Date: 20051102
  Receipt Date: 20051102
  Transmission Date: 20060501
  Serious: No
  Sender: FDA-Public Use
  Company Number: None

PATIENT
  Age: 77 Year
  Sex: Male
  Weight: 75 kg

DRUGS (3)
  1. SPIRONOLACTONE [Suspect]
     Dosage: 25 MG A DAY
  2. ENALAPRIL [Suspect]
     Dosage: 5MG 1/2 BID
  3. POTASSIUM CHLORIDE [Suspect]
     Dosage: 20 MEQ

REACTIONS (5)
  - ASTHENIA [None]
  - DIZZINESS [None]
  - FALL [None]
  - HYPERKALAEMIA [None]
  - RENAL FAILURE ACUTE [None]
